FAERS Safety Report 14368014 (Version 1)
Quarter: 2018Q1

REPORT INFORMATION
  Report Type: Spontaneous
  Country: US (occurrence: US)
  Receive Date: 20180109
  Receipt Date: 20180109
  Transmission Date: 20180509
  Serious: Yes (Other)
  Sender: FDA-Public Use
  Company Number: None

PATIENT
  Age: 41 Year
  Sex: Male
  Weight: 90 kg

DRUGS (2)
  1. CHLO HIST [Suspect]
     Active Substance: CHLOPHEDIANOL HYDROCHLORIDE\DEXBROMPHENIRAMINE MALEATE
     Indication: RESPIRATORY DISORDER
     Route: 048
  2. DOXYCYCLINE. [Concomitant]
     Active Substance: DOXYCYCLINE

REACTIONS (8)
  - Abdominal pain upper [None]
  - Hallucination, visual [None]
  - Muscle tightness [None]
  - Memory impairment [None]
  - Dysgeusia [None]
  - Muscle spasms [None]
  - Muscle twitching [None]
  - Nervousness [None]

NARRATIVE: CASE EVENT DATE: 20180103
